FAERS Safety Report 8503969-9 (Version None)
Quarter: 2012Q3

REPORT INFORMATION
  Report Type: 
  Country: None (occurrence: None)
  Receive Date: 20120711
  Receipt Date: 20120706
  Transmission Date: 20120928
  Serious: Yes (Hospitalization)
  Sender: FDA-Public Use
  Company Number: US-ACTELION-A-US2012-68297

PATIENT

DRUGS (4)
  1. COUMADIN [Concomitant]
  2. SILDENAFIL [Concomitant]
  3. VENTAVIS [Suspect]
     Indication: PULMONARY ARTERIAL HYPERTENSION
     Dosage: UNK
     Route: 055
  4. CALCIUM CHANNEL BLOCKERS [Concomitant]

REACTIONS (1)
  - URINARY TRACT INFECTION [None]
